FAERS Safety Report 10165208 (Version 1)
Quarter: 2014Q2

REPORT INFORMATION
  Report Type: Spontaneous
  Country: US (occurrence: US)
  Receive Date: 20140510
  Receipt Date: 20140510
  Transmission Date: 20141212
  Serious: No
  Sender: FDA-Public Use
  Company Number: US-BRISTOL-MYERS SQUIBB COMPANY-19765973

PATIENT
  Age: 55 Year
  Sex: Male

DRUGS (4)
  1. BYDUREON [Suspect]
     Route: 058
  2. GLIPIZIDE [Concomitant]
  3. METFORMIN [Concomitant]
  4. TRADJENTA [Concomitant]

REACTIONS (3)
  - Injection site pain [Recovered/Resolved]
  - Drug dose omission [Unknown]
  - Product quality issue [Unknown]
